FAERS Safety Report 4333946-3 (Version None)
Quarter: 2004Q2

REPORT INFORMATION
  Report Type: 
  Country: None (occurrence: None)
  Receive Date: 20040402
  Receipt Date: 20040319
  Transmission Date: 20050107
  Serious: Yes (Other)
  Sender: FDA-Public Use
  Company Number: ZONI001281

PATIENT
  Age: 19 Year
  Sex: Male
  Weight: 63.05 kg

DRUGS (3)
  1. ZONEGRAN [Suspect]
     Indication: GRAND MAL CONVULSION
     Dosage: 200 MG DAILY ORAL
     Route: 048
     Dates: start: 20030601, end: 20031001
  2. VALPROIC ACID [Concomitant]
  3. IMIPRAMINE [Concomitant]

REACTIONS (11)
  - AGGRESSION [None]
  - ANGER [None]
  - CONVULSION [None]
  - DEPRESSION [None]
  - HYPOGLYCAEMIA [None]
  - INJURY [None]
  - MENTAL IMPAIRMENT [None]
  - MOOD SWINGS [None]
  - SCRATCH [None]
  - TREATMENT NONCOMPLIANCE [None]
  - WEIGHT DECREASED [None]
